FAERS Safety Report 19795044 (Version 1)
Quarter: 2021Q3

REPORT INFORMATION
  Report Type: Spontaneous
  Country: TR (occurrence: TR)
  Receive Date: 20210907
  Receipt Date: 20210907
  Transmission Date: 20211014
  Serious: Yes (Death, Hospitalization, Other)
  Sender: FDA-Public Use
  Company Number: TR-IPCA LABORATORIES LIMITED-IPC-2021-TR-001598

PATIENT

DRUGS (2)
  1. VITAMIN K [Concomitant]
     Active Substance: PHYTONADIONE
     Indication: PRODUCT USED FOR UNKNOWN INDICATION
     Dosage: 10 MILLIGRAM
     Route: 065
  2. METFORMIN [Suspect]
     Active Substance: METFORMIN HYDROCHLORIDE
     Indication: PRODUCT USED FOR UNKNOWN INDICATION
     Dosage: 500 MILLIGRAM
     Route: 065

REACTIONS (15)
  - Coagulopathy [Fatal]
  - Compartment syndrome [Fatal]
  - Hypotension [Fatal]
  - Metabolic acidosis [Fatal]
  - Bradycardia [Fatal]
  - Tachycardia [Fatal]
  - Toxicity to various agents [Fatal]
  - Blood lactic acid increased [Fatal]
  - Cardiac arrest [Fatal]
  - Hyperkalaemia [Fatal]
  - Rhabdomyolysis [Fatal]
  - Hypertension [Fatal]
  - Diabetic ketoacidosis [Fatal]
  - Dehydration [Fatal]
  - Sepsis [Fatal]
